FAERS Safety Report 16361563 (Version 1)
Quarter: 2019Q2

REPORT INFORMATION
  Report Type: Spontaneous
  Country: US (occurrence: US)
  Receive Date: 20190528
  Receipt Date: 20190528
  Transmission Date: 20190711
  Serious: No
  Sender: FDA-Public Use
  Company Number: US-PFIZER INC-2019221002

PATIENT
  Age: 60 Year
  Sex: Female
  Weight: 142.88 kg

DRUGS (1)
  1. LYRICA [Suspect]
     Active Substance: PREGABALIN
     Indication: NEUROPATHY PERIPHERAL
     Dosage: 300 MG, DAILY (2 IN EVENING AND ONE DURING THE DAY)
     Dates: start: 2014

REACTIONS (1)
  - Therapeutic product effect incomplete [Not Recovered/Not Resolved]
